FAERS Safety Report 8105072-9 (Version None)
Quarter: 2012Q1

REPORT INFORMATION
  Report Type: 
  Country: None (occurrence: None)
  Receive Date: 20120201
  Receipt Date: 20120123
  Transmission Date: 20120608
  Serious: Yes (Other)
  Sender: FDA-Public Use
  Company Number: FR-TEVA-320057ISR

PATIENT
  Age: 35 Year
  Sex: Female

DRUGS (2)
  1. ACTIQ [Suspect]
     Dosage: 1200 MICROGRAM;
  2. ACTIQ [Suspect]
     Indication: PAIN
     Dosage: 800 MICROGRAM;

REACTIONS (2)
  - DRUG DEPENDENCE [None]
  - OFF LABEL USE [None]
